FAERS Safety Report 15112284 (Version 1)
Quarter: 2018Q3

REPORT INFORMATION
  Report Type: Spontaneous
  Country: US (occurrence: US)
  Receive Date: 20180705
  Receipt Date: 20180705
  Transmission Date: 20181010
  Serious: No
  Sender: FDA-Public Use
  Company Number: US-AMAG PHARMACEUTICALS, INC.-AMAG201703248

PATIENT

DRUGS (1)
  1. FERAHEME [Suspect]
     Active Substance: FERUMOXYTOL NON-STOICHIOMETRIC MAGNETITE
     Indication: IRON DEFICIENCY
     Dosage: UNK, SINGLE
     Route: 042
     Dates: start: 20171018

REACTIONS (9)
  - Hypersensitivity [Recovered/Resolved]
  - Oral pruritus [Recovered/Resolved]
  - Eye swelling [Recovered/Resolved]
  - Rash [Recovered/Resolved]
  - Throat tightness [Recovered/Resolved]
  - Urticaria [Recovered/Resolved]
  - Lip swelling [Recovered/Resolved]
  - Chills [Recovered/Resolved]
  - Cough [Recovered/Resolved]

NARRATIVE: CASE EVENT DATE: 20171018
